FAERS Safety Report 8452540-6 (Version None)
Quarter: 2012Q2

REPORT INFORMATION
  Report Type: 
  Country: None (occurrence: None)
  Receive Date: 20120620
  Receipt Date: 20120414
  Transmission Date: 20120825
  Serious: No
  Sender: FDA-Public Use
  Company Number: US-VERTEX PHARMACEUTICALS INC.-AE-2012-005426

PATIENT
  Sex: Female
  Weight: 105.33 kg

DRUGS (5)
  1. PEGASYS [Concomitant]
     Indication: HEPATITIS C
     Route: 058
     Dates: start: 20120301
  2. INCIVEK [Suspect]
     Indication: HEPATITIS C
     Route: 048
     Dates: start: 20120301
  3. LOTREL [Concomitant]
     Indication: HYPERTENSION
     Route: 048
  4. DIABETES PILL [Concomitant]
     Route: 048
  5. RIBAVIRIN [Concomitant]
     Indication: HEPATITIS C
     Route: 048
     Dates: start: 20120301

REACTIONS (10)
  - CRYING [None]
  - EMOTIONAL DISORDER [None]
  - INSOMNIA [None]
  - VISION BLURRED [None]
  - RASH GENERALISED [None]
  - IRRITABILITY [None]
  - EYE IRRITATION [None]
  - RESTLESSNESS [None]
  - EYE PAIN [None]
  - PRURITUS [None]
